FAERS Safety Report 15901714 (Version 1)
Quarter: 2019Q1

REPORT INFORMATION
  Report Type: Spontaneous
  Country: US (occurrence: US)
  Receive Date: 20190201
  Receipt Date: 20190201
  Transmission Date: 20190417
  Serious: Yes (Hospitalization)
  Sender: FDA-Public Use
  Company Number: None

PATIENT
  Age: 39 Year
  Sex: Female
  Weight: 84.6 kg

DRUGS (3)
  1. LINEZOLID. [Concomitant]
     Active Substance: LINEZOLID
     Dates: start: 20180814, end: 20180826
  2. ERTAPENEM. [Suspect]
     Active Substance: ERTAPENEM SODIUM
     Indication: INTERVERTEBRAL DISCITIS
     Route: 042
     Dates: start: 20180814, end: 20180823
  3. DAPTOMYCIN. [Concomitant]
     Active Substance: DAPTOMYCIN
     Dates: start: 20180814, end: 20180821

REACTIONS (4)
  - Blood creatine phosphokinase increased [None]
  - Swollen tongue [None]
  - Lip swelling [None]
  - Pharyngeal oedema [None]
